FAERS Safety Report 8546884 (Version 3)
Quarter: 2013Q3

REPORT INFORMATION
  Report Type: Report from Study
  Country: MX (occurrence: MX)
  Receive Date: 20120504
  Receipt Date: 20130812
  Transmission Date: 20140515
  Serious: Yes (Death, Hospitalization, Other)
  Sender: FDA-Public Use
  Company Number: PHHY2012MX036863

PATIENT
  Age: 79 Year
  Sex: Female

DRUGS (6)
  1. RASILEZ [Suspect]
     Indication: HYPERTENSION
     Dosage: 1 DF/DAY
     Dates: start: 201110, end: 2012
  2. METOPROLOL [Concomitant]
     Indication: HYPERTENSION
     Dosage: 2 DF
  3. NIFEDIPINE [Concomitant]
     Indication: HYPERTENSION
     Dosage: 2 DF
  4. LOSARTAN [Concomitant]
     Indication: HYPERTENSION
     Dosage: 2 DF
  5. METFORMIN [Concomitant]
     Indication: DIABETES MELLITUS
     Dosage: 1 DF
  6. LANTUS [Concomitant]
     Indication: DIABETES MELLITUS

REACTIONS (6)
  - Cerebral infarction [Fatal]
  - Cerebrovascular accident [Fatal]
  - Blood glucose increased [Not Recovered/Not Resolved]
  - Blood pressure increased [Not Recovered/Not Resolved]
  - Diabetic complication [Unknown]
  - Hypertension [Unknown]
